FAERS Safety Report 8218768-5 (Version None)
Quarter: 2012Q1

REPORT INFORMATION
  Report Type: 
  Country: None (occurrence: None)
  Receive Date: 20120319
  Receipt Date: 20120312
  Transmission Date: 20120608
  Serious: Yes (Hospitalization)
  Sender: FDA-Public Use
  Company Number: PHHY2012FR022587

PATIENT
  Age: 47 Year
  Sex: Female

DRUGS (1)
  1. EXTAVIA [Suspect]
     Dosage: UNK
     Dates: start: 20111001

REACTIONS (6)
  - MULTIPLE SCLEROSIS RELAPSE [None]
  - DIZZINESS [None]
  - ERYTHEMA [None]
  - HYPOAESTHESIA [None]
  - HOT FLUSH [None]
  - INJECTION SITE PAIN [None]
